FAERS Safety Report 7495251-6 (Version None)
Quarter: 2011Q2

REPORT INFORMATION
  Report Type: 
  Country: None (occurrence: None)
  Receive Date: 20110522
  Receipt Date: 20110509
  Transmission Date: 20111010
  Serious: Yes (Other)
  Sender: FDA-Public Use
  Company Number: JP-MYLANLABS-2011S1009590

PATIENT
  Age: 68 Year
  Sex: Male

DRUGS (1)
  1. FLUDARABINE PHOSPHATE [Suspect]
     Indication: STEM CELL TRANSPLANT
     Route: 065

REACTIONS (2)
  - DISSEMINATED INTRAVASCULAR COAGULATION [None]
  - ENGRAFTMENT SYNDROME [None]
